FAERS Safety Report 4440720-6 (Version None)
Quarter: 2004Q3

REPORT INFORMATION
  Report Type: 
  Country: None (occurrence: None)
  Receive Date: 20040728
  Receipt Date: 20040311
  Transmission Date: 20050211
  Serious: No
  Sender: FDA-Public Use
  Company Number: USA040361858

PATIENT
  Age: 13 Year
  Sex: Female
  Weight: 45 kg

DRUGS (2)
  1. STRATTERA [Suspect]
     Indication: ATTENTION DEFICIT/HYPERACTIVITY DISORDER
     Dosage: 25 MG/1 IN THE EVENING
     Dates: start: 20040214
  2. ADDERALL 10 [Concomitant]

REACTIONS (1)
  - ALOPECIA [None]
